FAERS Safety Report 22714692 (Version 7)
Quarter: 2024Q1

REPORT INFORMATION
  Report Type: Report from Study
  Country: NL (occurrence: NL)
  Receive Date: 20230718
  Receipt Date: 20240301
  Transmission Date: 20240409
  Serious: No
  Sender: FDA-Public Use
  Company Number: NL-ABBVIE-5327377

PATIENT

DRUGS (1)
  1. OZURDEX [Suspect]
     Active Substance: DEXAMETHASONE
     Indication: Product used for unknown indication
     Dosage: TIME INTERVAL: AS NECESSARY
     Route: 031
     Dates: start: 202307

REACTIONS (3)
  - Product administered at inappropriate site [Not Recovered/Not Resolved]
  - Device issue [Unknown]
  - Implantation complication [Not Recovered/Not Resolved]

NARRATIVE: CASE EVENT DATE: 20230701
